FAERS Safety Report 6729929-6 (Version None)
Quarter: 2010Q2

REPORT INFORMATION
  Report Type: 
  Country: None (occurrence: None)
  Receive Date: 20100512
  Receipt Date: 20100402
  Transmission Date: 20101027
  Serious: Yes (Other)
  Sender: FDA-Public Use
  Company Number: 1000012800

PATIENT
  Age: 62 Year
  Sex: Female

DRUGS (18)
  1. SAVELLA [Suspect]
     Indication: DIABETES MELLITUS
     Dosage: 12.5 MG (12.5 MG, 1 IN 1 D), ORAL ; 25 MG (12.5 MG, 2 IN 1 D), ORAL ;  50 MG (25 MG, 2 IN 1 D), ORAL
     Route: 048
     Dates: start: 20100101, end: 20100101
  2. SAVELLA [Suspect]
     Indication: FIBROMYALGIA
     Dosage: 12.5 MG (12.5 MG, 1 IN 1 D), ORAL ; 25 MG (12.5 MG, 2 IN 1 D), ORAL ;  50 MG (25 MG, 2 IN 1 D), ORAL
     Route: 048
     Dates: start: 20100101, end: 20100101
  3. SAVELLA [Suspect]
     Indication: DIABETES MELLITUS
     Dosage: 12.5 MG (12.5 MG, 1 IN 1 D), ORAL ; 25 MG (12.5 MG, 2 IN 1 D), ORAL ;  50 MG (25 MG, 2 IN 1 D), ORAL
     Route: 048
     Dates: start: 20100101, end: 20100101
  4. SAVELLA [Suspect]
     Indication: FIBROMYALGIA
     Dosage: 12.5 MG (12.5 MG, 1 IN 1 D), ORAL ; 25 MG (12.5 MG, 2 IN 1 D), ORAL ;  50 MG (25 MG, 2 IN 1 D), ORAL
     Route: 048
     Dates: start: 20100101, end: 20100101
  5. SAVELLA [Suspect]
     Indication: DIABETES MELLITUS
     Dosage: 12.5 MG (12.5 MG, 1 IN 1 D), ORAL ; 25 MG (12.5 MG, 2 IN 1 D), ORAL ;  50 MG (25 MG, 2 IN 1 D), ORAL
     Route: 048
     Dates: start: 20100101, end: 20100101
  6. SAVELLA [Suspect]
     Indication: FIBROMYALGIA
     Dosage: 12.5 MG (12.5 MG, 1 IN 1 D), ORAL ; 25 MG (12.5 MG, 2 IN 1 D), ORAL ;  50 MG (25 MG, 2 IN 1 D), ORAL
     Route: 048
     Dates: start: 20100101, end: 20100101
  7. SAVELLA [Suspect]
     Indication: FIBROMYALGIA
     Dosage: 100 MG (50 MG, 1 IN 1 D), ORAL
     Route: 048
     Dates: start: 20100101, end: 20100318
  8. HYDROCODONE [Concomitant]
  9. VALIUM [Concomitant]
  10. PROZAC [Concomitant]
  11. NEXIUM [Concomitant]
  12. METFORMIN HYDROCHLORIDE [Concomitant]
  13. METOPROLOL [Concomitant]
  14. IRON SULFATETHIAMIN COMPOUND TAB [Concomitant]
  15. LIPITOR [Concomitant]
  16. REGLAN [Concomitant]
  17. FLONASE [Concomitant]
  18. ALBUTEROL [Concomitant]

REACTIONS (1)
  - SUICIDAL IDEATION [None]
